FAERS Safety Report 23376913 (Version 1)
Quarter: 2024Q1

REPORT INFORMATION
  Report Type: Spontaneous
  Country: US (occurrence: US)
  Receive Date: 20240108
  Receipt Date: 20240108
  Transmission Date: 20240410
  Serious: Yes (Other)
  Sender: FDA-Public Use
  Company Number: US-TEVA-VS-3140250

PATIENT

DRUGS (21)
  1. PENICILLIN [Suspect]
     Active Substance: PENICILLIN
     Indication: Product used for unknown indication
     Route: 065
  2. VENCLEXTA [Concomitant]
     Active Substance: VENETOCLAX
  3. FOLBIC [Concomitant]
     Active Substance: CYANOCOBALAMIN\FOLIC ACID\PYRIDOXINE
  4. TESTIM [Concomitant]
     Active Substance: TESTOSTERONE
  5. RUXIENCE [Concomitant]
     Active Substance: RITUXIMAB-PVVR
  6. LIPITOR [Concomitant]
     Active Substance: ATORVASTATIN CALCIUM
  7. LISINOPRIL [Concomitant]
     Active Substance: LISINOPRIL
  8. LATUDA [Concomitant]
     Active Substance: LURASIDONE HYDROCHLORIDE
  9. ROXICODONE [Concomitant]
     Active Substance: OXYCODONE HYDROCHLORIDE
  10. LYRICA [Concomitant]
     Active Substance: PREGABALIN
  11. OXYCODONE [Concomitant]
     Active Substance: OXYCODONE
  12. PREGABALIN [Concomitant]
     Active Substance: PREGABALIN
  13. ZYLOPRIM [Concomitant]
     Active Substance: ALLOPURINOL
  14. LAMICTAL [Concomitant]
     Active Substance: LAMOTRIGINE
  15. SYNTHROID [Concomitant]
     Active Substance: LEVOTHYROXINE SODIUM
  16. GLUCOPHAGE [Concomitant]
     Active Substance: METFORMIN HYDROCHLORIDE
  17. PROTONIX [Concomitant]
     Active Substance: PANTOPRAZOLE SODIUM
  18. VIAGRA [Concomitant]
     Active Substance: SILDENAFIL CITRATE
  19. THIAMINE [Concomitant]
     Active Substance: THIAMINE
  20. MORPHINE [Concomitant]
     Active Substance: MORPHINE
  21. SEROQUEL [Concomitant]
     Active Substance: QUETIAPINE FUMARATE

REACTIONS (1)
  - Anaphylactic reaction [Unknown]
